FAERS Safety Report 16176361 (Version 2)
Quarter: 2019Q2

REPORT INFORMATION
  Report Type: Spontaneous
  Country: US (occurrence: US)
  Receive Date: 20190409
  Receipt Date: 20190415
  Transmission Date: 20190711
  Serious: No
  Sender: FDA-Public Use
  Company Number: US-SA-2019SA097844

PATIENT
  Age: 66 Year
  Sex: Female

DRUGS (1)
  1. LANTUS SOLOSTAR [Suspect]
     Active Substance: INSULIN GLARGINE
     Indication: DIABETES MELLITUS
     Dosage: 40 U, HS
     Route: 065

REACTIONS (5)
  - Memory impairment [Unknown]
  - Pain [Unknown]
  - Injection site pain [Unknown]
  - Product use complaint [Unknown]
  - Device operational issue [Unknown]
